FAERS Safety Report 23048367 (Version 1)
Quarter: 2023Q4

REPORT INFORMATION
  Report Type: Spontaneous
  Country: US (occurrence: US)
  Receive Date: 20231010
  Receipt Date: 20231010
  Transmission Date: 20240110
  Serious: No
  Sender: FDA-Public Use
  Company Number: US-drreddys-SPO/USA/23/0176663

PATIENT
  Age: 49 Year

DRUGS (1)
  1. ACCUTANE [Suspect]
     Active Substance: ISOTRETINOIN
     Indication: Product used for unknown indication
     Dosage: RMA ISSUE DATE: 14 APRIL 2023 04:35:41 PM, 23 MAY 2023 11:51:20 AM, 02 AUGUST 2023 10:43:19 AM

REACTIONS (1)
  - Treatment noncompliance [Unknown]
